FAERS Safety Report 23794295 (Version 3)
Quarter: 2024Q2

REPORT INFORMATION
  Report Type: Spontaneous
  Country: FR (occurrence: None)
  Receive Date: 20240429
  Receipt Date: 20240507
  Transmission Date: 20240716
  Serious: Yes (Hospitalization)
  Sender: FDA-Public Use
  Company Number: FR-ROCHE-3549746

PATIENT
  Age: 84 Year
  Sex: Female

DRUGS (1)
  1. VABYSMO [Suspect]
     Active Substance: FARICIMAB\FARICIMAB-SVOA
     Indication: Neovascular age-related macular degeneration
     Dosage: ON 14/MAR/2024 RECEIVED FIRST INJECTION IN LEFT EYE?ON 04/APR/2024 RECEIVED LAST INJECTION IN RIGHT
     Route: 050
     Dates: start: 20240307

REACTIONS (7)
  - Vasculitis [Unknown]
  - Vitritis [Recovering/Resolving]
  - Retinal vasculitis [Recovering/Resolving]
  - Retinal oedema [Unknown]
  - Visual acuity reduced [Unknown]
  - Anterior chamber flare [Unknown]
  - Conjunctival hyperaemia [Unknown]

NARRATIVE: CASE EVENT DATE: 20240415
